FAERS Safety Report 5050274-1 (Version None)
Quarter: 2006Q3

REPORT INFORMATION
  Report Type: 
  Country: None (occurrence: None)
  Receive Date: 20060713
  Receipt Date: 20041027
  Transmission Date: 20061208
  Serious: Yes (Other)
  Sender: FDA-Public Use
  Company Number: US-GILEAD-2004-0007666

PATIENT
  Sex: Female
  Weight: 3.133 kg

DRUGS (6)
  1. TENOFOVIR DISOPROXIL FUMARATE [Suspect]
     Indication: PROPHYLAXIS AGAINST HIV INFECTION
     Route: 064
     Dates: start: 20040924, end: 20040924
  2. AZT [Suspect]
     Indication: PROPHYLAXIS AGAINST HIV INFECTION
     Route: 064
     Dates: start: 20040924, end: 20040924
  3. AZT [Suspect]
     Route: 064
     Dates: start: 20040924, end: 20040924
  4. ZIAGEN [Concomitant]
     Route: 064
     Dates: start: 20040602, end: 20040923
  5. VIRAMUNE [Concomitant]
     Route: 064
     Dates: start: 20040602, end: 20040923
  6. COMBIVIR [Concomitant]
     Route: 064
     Dates: start: 20040602, end: 20040923

REACTIONS (12)
  - ALANINE AMINOTRANSFERASE INCREASED [None]
  - ANAEMIA MACROCYTIC [None]
  - ASPARTATE AMINOTRANSFERASE INCREASED [None]
  - BLOOD AMYLASE INCREASED [None]
  - BLOOD CREATINE PHOSPHOKINASE INCREASED [None]
  - BLOOD GLUCOSE DECREASED [None]
  - BLOOD POTASSIUM INCREASED [None]
  - BLOOD URIC ACID INCREASED [None]
  - DRUG EXPOSURE DURING PREGNANCY [None]
  - HAEMOLYSIS [None]
  - MYOPATHY [None]
  - NEUTROPHIL COUNT DECREASED [None]
